FAERS Safety Report 9150201 (Version 8)
Quarter: 2015Q1

REPORT INFORMATION
  Report Type: Report from Study
  Country: US (occurrence: US)
  Receive Date: 20130308
  Receipt Date: 20150122
  Transmission Date: 20150721
  Serious: Yes (Death, Hospitalization, Other)
  Sender: FDA-Public Use
  Company Number: PHEH2013US003710

PATIENT
  Sex: Female
  Weight: 60.23 kg

DRUGS (20)
  1. COUMADINE [Suspect]
     Active Substance: WARFARIN SODIUM
     Dosage: 2 MG, QD
     Route: 048
     Dates: start: 20130319
  2. PRILOSEC [Concomitant]
     Active Substance: OMEPRAZOLE MAGNESIUM
     Dosage: 20 MG, DAILY
     Route: 048
  3. OMEPRAZOLE. [Concomitant]
     Active Substance: OMEPRAZOLE
     Dosage: 20 MG/DAY
     Route: 048
  4. LUTEIN [Concomitant]
     Active Substance: LUTEIN
     Dosage: 1 DF, DAILY
     Route: 048
  5. EUCERIN CREME [Concomitant]
     Route: 061
  6. AFINITOR [Suspect]
     Active Substance: EVEROLIMUS
     Dosage: 10 MG, QD
     Route: 048
     Dates: start: 20120821
  7. SANDOSTATIN LAR DEPOT [Concomitant]
     Active Substance: OCTREOTIDE ACETATE
     Dosage: 30 MG, EVERY 26 DAYS
     Route: 030
     Dates: start: 20120821
  8. VITAMIN D3 [Concomitant]
     Active Substance: CHOLECALCIFEROL
     Indication: VITAMIN D DEFICIENCY
     Dosage: 1000 U/DAILY
     Route: 048
     Dates: end: 20130628
  9. BETA CAROTENE [Concomitant]
     Dosage: 1 DF, DAILY
     Route: 048
  10. COUMADINE [Suspect]
     Active Substance: WARFARIN SODIUM
     Indication: DEEP VEIN THROMBOSIS
     Dosage: 10 MG/DAY
     Route: 048
     Dates: start: 20121202, end: 20121219
  11. REVINA [Concomitant]
     Dosage: 87 MG
     Route: 061
  12. AFINITOR [Suspect]
     Active Substance: EVEROLIMUS
     Dosage: 10 MG, QD
     Dates: start: 20121024
  13. FOSAMAX [Concomitant]
     Active Substance: ALENDRONATE SODIUM
  14. SANDOSTATIN LAR DEPOT [Concomitant]
     Active Substance: OCTREOTIDE ACETATE
     Dosage: 100 UG, UNK
  15. OCTREOTIDE [Suspect]
     Active Substance: OCTREOTIDE
     Indication: NEUROENDOCRINE TUMOUR
     Dosage: 30 MG, EVERY 28 DAYS
     Route: 030
     Dates: start: 20120523
  16. BISMATROL [Concomitant]
     Active Substance: BISMUTH SUBSALICYLATE
     Dosage: 30 ML, QID
     Route: 048
  17. OCUVITE [Concomitant]
     Active Substance: VITAMINS
     Dosage: 1 DF, DAILY
     Route: 048
  18. VITAMIN E-400 [Concomitant]
     Dosage: 1 DF, DAILY
     Route: 048
  19. AUGMENTIN [Concomitant]
     Active Substance: AMOXICILLIN\CLAVULANATE POTASSIUM
     Dosage: 1 DF, BID
     Route: 048
  20. PRESERVISION [Concomitant]
     Dosage: 1 DF, DAILY
     Route: 048

REACTIONS (58)
  - Abdominal pain lower [Not Recovered/Not Resolved]
  - Hot flush [Unknown]
  - Contusion [Unknown]
  - Muscular weakness [Unknown]
  - Aphthous stomatitis [Unknown]
  - Abdominal distension [Unknown]
  - Dizziness [Unknown]
  - Oedema peripheral [Unknown]
  - Pyrexia [Unknown]
  - Rash [Unknown]
  - Chest pain [Unknown]
  - Haematuria [Recovered/Resolved]
  - Nausea [Unknown]
  - Malignant neoplasm progression [Unknown]
  - Weight increased [Unknown]
  - Petechiae [Unknown]
  - Dysuria [Unknown]
  - Flushing [Unknown]
  - Asthenia [Unknown]
  - Decubitus ulcer [Unknown]
  - Coagulopathy [Recovered/Resolved]
  - Neuroendocrine tumour [Unknown]
  - Night sweats [Unknown]
  - Urticaria [Unknown]
  - Headache [Unknown]
  - Renal cyst haemorrhage [Recovered/Resolved]
  - Constipation [Recovering/Resolving]
  - Weight decreased [Recovered/Resolved]
  - Thirst [Unknown]
  - Musculoskeletal disorder [Not Recovered/Not Resolved]
  - Oral disorder [Recovering/Resolving]
  - Palmar-plantar erythrodysaesthesia syndrome [Unknown]
  - Dyspnoea [Unknown]
  - Epistaxis [Unknown]
  - Arthralgia [Unknown]
  - Feeling abnormal [Unknown]
  - Deep vein thrombosis [Recovered/Resolved]
  - Decreased appetite [Recovered/Resolved]
  - Fall [Unknown]
  - Pallor [Unknown]
  - Chills [Unknown]
  - Cough [Unknown]
  - Infection [Unknown]
  - Thrombocytopenia [Recovered/Resolved]
  - Cellulitis [Recovered/Resolved]
  - Vomiting [Unknown]
  - Diarrhoea [Recovered/Resolved]
  - Alopecia [Unknown]
  - Bone pain [Unknown]
  - Abdominal pain [Unknown]
  - Death [Fatal]
  - Febrile neutropenia [Recovered/Resolved]
  - Fluid intake reduced [Unknown]
  - Deafness [Unknown]
  - Back pain [Not Recovered/Not Resolved]
  - Fatigue [Recovered/Resolved]
  - Gingival bleeding [Unknown]
  - Insomnia [Unknown]
